FAERS Safety Report 7506242-0 (Version None)
Quarter: 2011Q2

REPORT INFORMATION
  Report Type: 
  Country: None (occurrence: None)
  Receive Date: 20110526
  Receipt Date: 20101126
  Transmission Date: 20111010
  Serious: Yes (Hospitalization, Other)
  Sender: FDA-Public Use
  Company Number: PHHY2010DE67732

PATIENT
  Sex: Female

DRUGS (2)
  1. AMLODIPINE [Suspect]
     Indication: HYPERTENSION
  2. EXFORGE [Suspect]
     Indication: HYPERTENSION

REACTIONS (3)
  - RESPIRATORY DISORDER [None]
  - LUNG NEOPLASM [None]
  - HYPERSENSITIVITY [None]
